FAERS Safety Report 6209233-5 (Version None)
Quarter: 2009Q2

REPORT INFORMATION
  Report Type: 
  Country: None (occurrence: None)
  Receive Date: 20090529
  Receipt Date: 20090520
  Transmission Date: 20091009
  Serious: Yes (Hospitalization, Other)
  Sender: FDA-Public Use
  Company Number: PHHO2009DE03600

PATIENT
  Sex: Female

DRUGS (1)
  1. AMN107 AMN+CAP [Suspect]
     Indication: CHRONIC MYELOID LEUKAEMIA
     Dosage: 400 MG DAILY AS 200 MG TWICE A DAY
     Route: 048
     Dates: start: 20050615

REACTIONS (3)
  - BIOPSY MUSCLE [None]
  - GAIT DISTURBANCE [None]
  - MUSCLE ATROPHY [None]
